FAERS Safety Report 7938962-8 (Version None)
Quarter: 2011Q4

REPORT INFORMATION
  Report Type: 
  Country: None (occurrence: None)
  Receive Date: 20111124
  Receipt Date: 20111121
  Transmission Date: 20120403
  Serious: No
  Sender: FDA-Public Use
  Company Number: US-PFIZER INC-K201101064

PATIENT
  Sex: Male
  Weight: 84 kg

DRUGS (1)
  1. FLECTOR [Suspect]
     Indication: MUSCULOSKELETAL PAIN
     Dosage: UNK
     Route: 061
     Dates: start: 20110903, end: 20110909

REACTIONS (4)
  - SKIN SWELLING [None]
  - RASH [None]
  - COLD SWEAT [None]
  - PRURITUS [None]
